FAERS Safety Report 7745926-6 (Version None)
Quarter: 2011Q3

REPORT INFORMATION
  Report Type: 
  Country: None (occurrence: None)
  Receive Date: 20110913
  Receipt Date: 20110908
  Transmission Date: 20111222
  Serious: No
  Sender: FDA-Public Use
  Company Number: US-PFIZER INC-2011211940

PATIENT
  Sex: Female
  Weight: 72.562 kg

DRUGS (1)
  1. ADVIL LIQUI-GELS [Suspect]
     Indication: PROPHYLAXIS
     Dosage: 400 MG, 2X/DAY
     Route: 048
     Dates: start: 20110908

REACTIONS (1)
  - PAIN IN EXTREMITY [None]
